FAERS Safety Report 24556046 (Version 1)
Quarter: 2024Q4

REPORT INFORMATION
  Report Type: Spontaneous
  Country: FR (occurrence: FR)
  Receive Date: 20241028
  Receipt Date: 20241028
  Transmission Date: 20250115
  Serious: Yes (Hospitalization, Other)
  Sender: FRESENIUS KABI
  Company Number: None

PATIENT
  Age: 76 Year
  Sex: Female
  Weight: 92.7 kg

DRUGS (24)
  1. PACLITAXEL [Suspect]
     Active Substance: PACLITAXEL
     Indication: Papillary serous endometrial carcinoma
     Dosage: ROUTE OF ADMIN: INTRAVENOUS
     Dates: start: 20240913, end: 20240913
  2. PACLITAXEL [Suspect]
     Active Substance: PACLITAXEL
     Dosage: ROUTE OF ADMIN: INTRAVENOUS
     Dates: start: 20240903, end: 20240903
  3. PACLITAXEL [Suspect]
     Active Substance: PACLITAXEL
     Dosage: ROUTE OF ADMIN: INTRAVENOUS
     Dates: start: 20240827, end: 20240827
  4. PACLITAXEL [Suspect]
     Active Substance: PACLITAXEL
     Dosage: ROUTE OF ADMIN: INTRAVENOUS
     Dates: start: 20240820, end: 20240820
  5. PACLITAXEL [Suspect]
     Active Substance: PACLITAXEL
     Dosage: ROUTE OF ADMIN: INTRAVENOUS
     Dates: start: 20240813, end: 20240813
  6. PACLITAXEL [Suspect]
     Active Substance: PACLITAXEL
     Dosage: ROUTE OF ADMIN: INTRAVENOUS
     Dates: start: 20240723, end: 20240723
  7. PACLITAXEL [Suspect]
     Active Substance: PACLITAXEL
     Dosage: ROUTE OF ADMIN: INTRAVENOUS
     Dates: start: 20240716, end: 20240716
  8. PACLITAXEL [Suspect]
     Active Substance: PACLITAXEL
     Dosage: ROUTE OF ADMIN: INTRAVENOUS
     Dates: start: 20240709, end: 20240709
  9. PACLITAXEL [Suspect]
     Active Substance: PACLITAXEL
     Dosage: ROUTE OF ADMIN: INTRAVENOUS
     Dates: start: 20240702, end: 20240702
  10. PACLITAXEL [Suspect]
     Active Substance: PACLITAXEL
     Dosage: ROUTE OF ADMIN: INTRAVENOUS
     Dates: start: 20240625, end: 20240625
  11. CARBOPLATIN [Suspect]
     Active Substance: CARBOPLATIN
     Indication: Papillary serous endometrial carcinoma
     Dosage: ROUTE OF ADMIN: INTRAVENOUS
     Dates: start: 20240913, end: 20240913
  12. CARBOPLATIN [Suspect]
     Active Substance: CARBOPLATIN
     Dosage: ROUTE OF ADMIN: INTRAVENOUS
     Dates: start: 20240903, end: 20240903
  13. CARBOPLATIN [Suspect]
     Active Substance: CARBOPLATIN
     Dosage: ROUTE OF ADMIN: INTRAVENOUS
     Dates: start: 20240827, end: 20240827
  14. CARBOPLATIN [Suspect]
     Active Substance: CARBOPLATIN
     Dosage: ROUTE OF ADMIN: INTRAVENOUS
     Dates: start: 20240820, end: 20240820
  15. CARBOPLATIN [Suspect]
     Active Substance: CARBOPLATIN
     Dosage: ROUTE OF ADMIN: INTRAVENOUS
     Dates: start: 20240813, end: 20240813
  16. CARBOPLATIN [Suspect]
     Active Substance: CARBOPLATIN
     Dosage: ROUTE OF ADMIN: INTRAVENOUS
     Dates: start: 20240723, end: 20240723
  17. CARBOPLATIN [Suspect]
     Active Substance: CARBOPLATIN
     Dosage: ROUTE OF ADMIN: INTRAVENOUS
     Dates: start: 20240716, end: 20240716
  18. CARBOPLATIN [Suspect]
     Active Substance: CARBOPLATIN
     Dosage: ROUTE OF ADMIN: INTRAVENOUS
     Dates: start: 20240709, end: 20240709
  19. CARBOPLATIN [Suspect]
     Active Substance: CARBOPLATIN
     Dosage: ROUTE OF ADMIN: INTRAVENOUS
     Dates: start: 20240702, end: 20240702
  20. CARBOPLATIN [Suspect]
     Active Substance: CARBOPLATIN
     Dosage: ROUTE OF ADMIN: INTRAVENOUS
     Dates: start: 20240625, end: 20240625
  21. JEMPERLI [Suspect]
     Active Substance: DOSTARLIMAB\DOSTARLIMAB-GXLY
     Indication: Papillary serous endometrial carcinoma
     Dosage: ROA: INTRAVENOUS
     Dates: start: 20240903, end: 20240903
  22. JEMPERLI [Suspect]
     Active Substance: DOSTARLIMAB\DOSTARLIMAB-GXLY
     Dosage: ROA: INTRAVENOUS
     Dates: start: 20240813, end: 20240813
  23. JEMPERLI [Suspect]
     Active Substance: DOSTARLIMAB\DOSTARLIMAB-GXLY
     Dosage: ROA: INTRAVENOUS
     Dates: start: 20240716, end: 20240716
  24. JEMPERLI [Suspect]
     Active Substance: DOSTARLIMAB\DOSTARLIMAB-GXLY
     Dosage: ROA: INTRAVENOUS
     Dates: start: 20240625, end: 20240625

REACTIONS (3)
  - Lichenoid keratosis [Recovering/Resolving]
  - Dermatitis bullous [Recovering/Resolving]
  - Hepatitis [Recovering/Resolving]

NARRATIVE: CASE EVENT DATE: 20240924
